FAERS Safety Report 8295444-4 (Version None)
Quarter: 2012Q2

REPORT INFORMATION
  Report Type: 
  Country: None (occurrence: None)
  Receive Date: 20120418
  Receipt Date: 20120411
  Transmission Date: 20120825
  Serious: Yes (Hospitalization)
  Sender: FDA-Public Use
  Company Number: US-ELI_LILLY_AND_COMPANY-US201201000750

PATIENT
  Sex: Female

DRUGS (1)
  1. FORTEO [Suspect]
     Dosage: 20 UG, UNKNOWN
     Route: 065
     Dates: start: 20110901

REACTIONS (14)
  - MALAISE [None]
  - ABDOMINAL DISCOMFORT [None]
  - DIZZINESS [None]
  - THINKING ABNORMAL [None]
  - FACIAL BONES FRACTURE [None]
  - ABDOMINAL PAIN UPPER [None]
  - FATIGUE [None]
  - PAIN [None]
  - BALANCE DISORDER [None]
  - FEELING ABNORMAL [None]
  - FALL [None]
  - RENAL DISORDER [None]
  - EYE INJURY [None]
  - CONTUSION [None]
